FAERS Safety Report 6955356-2 (Version None)
Quarter: 2010Q3

REPORT INFORMATION
  Report Type: 
  Country: None (occurrence: None)
  Receive Date: 20100826
  Receipt Date: 20100819
  Transmission Date: 20110219
  Serious: Yes (Hospitalization, Other)
  Sender: FDA-Public Use
  Company Number: 013469

PATIENT
  Sex: Female
  Weight: 44 kg

DRUGS (4)
  1. CERTOLIZUMAB PEGOL (CERTOLIZUMAB PEGOL) [Suspect]
     Indication: CROHN'S DISEASE
     Dosage: 400MG 1X/2 WEEKS, STUDY: CDP870-32, NBR OF DOSES: 3 SUBCUTANEOUS, 400 MG 1X/MONTH, STUDY: CDP870-32
     Route: 058
     Dates: start: 20040618, end: 20041215
  2. CERTOLIZUMAB PEGOL (CERTOLIZUMAB PEGOL) [Suspect]
     Indication: CROHN'S DISEASE
     Dosage: 400MG 1X/2 WEEKS, STUDY: CDP870-32, NBR OF DOSES: 3 SUBCUTANEOUS, 400 MG 1X/MONTH, STUDY: CDP870-32
     Route: 058
     Dates: start: 20050112
  3. PENTASA [Concomitant]
  4. AKRINOR [Concomitant]

REACTIONS (6)
  - ANAEMIA [None]
  - BLOOD BICARBONATE DECREASED [None]
  - BLOOD CHLORIDE INCREASED [None]
  - BLOOD SODIUM DECREASED [None]
  - CAMPYLOBACTER INTESTINAL INFECTION [None]
  - DYSPNOEA [None]
